FAERS Safety Report 19614917 (Version 1)
Quarter: 2021Q3

REPORT INFORMATION
  Report Type: Spontaneous
  Country: US (occurrence: US)
  Receive Date: 20210727
  Receipt Date: 20210727
  Transmission Date: 20211014
  Serious: No
  Sender: FDA-Public Use
  Company Number: US-ASTRAZENECA-2021A553608

PATIENT
  Sex: Male

DRUGS (2)
  1. BREZTRI [Suspect]
     Active Substance: BUDESONIDE\FORMOTEROL\GLYCOPYRRONIUM
     Indication: CHRONIC OBSTRUCTIVE PULMONARY DISEASE
     Dosage: BREZTRI 2 PUFFS BID, INDICATION FOR USE COPD
     Route: 055
     Dates: start: 20210505
  2. SYMBICORT [Suspect]
     Active Substance: BUDESONIDE\FORMOTEROL FUMARATE DIHYDRATE
     Indication: CHRONIC OBSTRUCTIVE PULMONARY DISEASE
     Dosage: SYMBICORT 80/4.5 MCG, FOR MANY YEARS, 20 YRS OR MORE, A LONG TIME, 2 PUFFS BID
     Route: 055

REACTIONS (4)
  - Cough [Recovered/Resolved]
  - Device delivery system issue [Unknown]
  - Incorrect dose administered by device [Unknown]
  - Device malfunction [Unknown]
